FAERS Safety Report 21417429 (Version 1)
Quarter: 2022Q4

REPORT INFORMATION
  Report Type: Spontaneous
  Country: ES (occurrence: ES)
  Receive Date: 20221006
  Receipt Date: 20221006
  Transmission Date: 20230112
  Serious: Yes (Other)
  Sender: FDA-Public Use
  Company Number: ES-SA-SAC20221003001802

PATIENT
  Sex: Male

DRUGS (1)
  1. LANTUS SOLOSTAR [Suspect]
     Active Substance: INSULIN GLARGINE
     Route: 058

REACTIONS (8)
  - Cerebral artery embolism [Unknown]
  - Cardiac disorder [Unknown]
  - Blood glucose increased [Recovering/Resolving]
  - Micturition urgency [Recovering/Resolving]
  - Product storage error [Unknown]
  - Limb injury [Unknown]
  - Localised infection [Recovering/Resolving]
  - Eye operation [Recovered/Resolved]
